FAERS Safety Report 16384054 (Version 1)
Quarter: 2019Q2

REPORT INFORMATION
  Report Type: Report from Study
  Country: JP (occurrence: JP)
  Receive Date: 20190603
  Receipt Date: 20190603
  Transmission Date: 20190711
  Serious: Yes (Other)
  Sender: FDA-Public Use
  Company Number: JP-ACTELION-A-CH2019-190829

PATIENT
  Age: 67 Year
  Sex: Female

DRUGS (7)
  1. PROCYLIN [Concomitant]
     Active Substance: BERAPROST SODIUM
  2. TAKECAB [Concomitant]
     Active Substance: VONOPRAZAN FUMURATE
  3. OXYGEN. [Concomitant]
     Active Substance: OXYGEN
  4. LASIX [Concomitant]
     Active Substance: FUROSEMIDE
  5. OPSUMIT [Suspect]
     Active Substance: MACITENTAN
     Indication: PORTOPULMONARY HYPERTENSION
     Dosage: 5 MG, QD
     Route: 048
     Dates: start: 20160727, end: 20160813
  6. ALLOPURINOL. [Concomitant]
     Active Substance: ALLOPURINOL
  7. URSO [Concomitant]
     Active Substance: URSODIOL

REACTIONS (1)
  - Pancytopenia [Recovering/Resolving]

NARRATIVE: CASE EVENT DATE: 20160812
